FAERS Safety Report 5846797-5 (Version None)
Quarter: 2008Q3

REPORT INFORMATION
  Report Type: 
  Country: None (occurrence: None)
  Receive Date: 20080815
  Receipt Date: 20080808
  Transmission Date: 20090109
  Serious: Yes (Other)
  Sender: FDA-Public Use
  Company Number: HQWYE779021JAN05

PATIENT
  Sex: Female
  Weight: 68.1 kg

DRUGS (4)
  1. PREMPRO [Suspect]
     Dosage: 0.625MG/2.5MG
     Route: 048
     Dates: start: 20010101, end: 20030101
  2. PREMARIN [Suspect]
     Dosage: 0.625MG
     Route: 048
     Dates: start: 19950101, end: 19980101
  3. SYNTHROID [Concomitant]
  4. PROVERA [Suspect]
     Dosage: 2.5MG
     Route: 048
     Dates: start: 19950101, end: 19980101

REACTIONS (1)
  - BREAST CANCER [None]
